FAERS Safety Report 21064620 (Version 1)
Quarter: 2022Q3

REPORT INFORMATION
  Report Type: Report from Study
  Country: US (occurrence: US)
  Receive Date: 20220711
  Receipt Date: 20220711
  Transmission Date: 20221027
  Serious: Yes (Other)
  Sender: FDA-Public Use
  Company Number: US-PFIZER INC-2020401374

PATIENT
  Age: 69 Year
  Sex: Female
  Weight: 63.492 kg

DRUGS (4)
  1. ABROCITINIB [Suspect]
     Active Substance: ABROCITINIB
     Indication: Dermatitis atopic
     Dosage: 200 MG, DAILY
     Route: 048
     Dates: start: 20190523
  2. ATENOLOL [Concomitant]
     Active Substance: ATENOLOL
     Indication: Hypertension
     Dosage: 25 MG, 2X/DAY
     Route: 048
     Dates: start: 2016
  3. LEVOTHYROXINE [Concomitant]
     Active Substance: LEVOTHYROXINE
     Indication: Hypothyroidism
     Dosage: 75 UG, 1X/DAY
     Route: 048
     Dates: start: 2017
  4. HYDROXYZINE [Concomitant]
     Active Substance: HYDROXYZINE HYDROCHLORIDE
     Indication: Insomnia
     Dosage: 25 MG, BEDTIME (H.S)
     Route: 048
     Dates: start: 20190606

REACTIONS (1)
  - Sebaceous carcinoma [Recovered/Resolved]

NARRATIVE: CASE EVENT DATE: 20190801
